FAERS Safety Report 8450164-8 (Version None)
Quarter: 2012Q2

REPORT INFORMATION
  Report Type: 
  Country: None (occurrence: None)
  Receive Date: 20120620
  Receipt Date: 20120612
  Transmission Date: 20120825
  Serious: Yes (Hospitalization)
  Sender: FDA-Public Use
  Company Number: US-BAYER-2012-009981

PATIENT
  Age: 45 Year
  Sex: Female
  Weight: 74.83 kg

DRUGS (20)
  1. YASMIN [Suspect]
     Indication: ACNE
     Dosage: UNK
     Dates: start: 20060101, end: 20091001
  2. PEPCID [Concomitant]
     Dosage: 20 MG, DAILY
  3. PLAVIX [Concomitant]
     Dosage: 75 MG, DAILY
  4. PRINIVIL [Concomitant]
     Dosage: 10 MG, EVERY DAY
  5. YAZ [Suspect]
     Dosage: UNK
     Dates: start: 20030901, end: 20090101
  6. NITROGLYCERIN [Concomitant]
  7. DIOVAN [Concomitant]
     Indication: HYPERTENSION
     Dosage: 160 MG, UNK
     Dates: start: 20090824
  8. ASPIRIN [Concomitant]
     Dosage: 325 MG, EVERY DAY
  9. YASMIN [Suspect]
     Dosage: UNK
     Dates: start: 20060101, end: 20091001
  10. VITAMIN TAB [Concomitant]
  11. CLARITIN [Concomitant]
     Dosage: 10 MG,DAILY
  12. YAZ [Suspect]
     Indication: ACNE
     Dosage: UNK
  13. EFFEXOR [Concomitant]
     Dosage: 75 MG, 2 EVERY DAY
  14. ZANTAC [Concomitant]
  15. STATIN [Concomitant]
  16. ANTIBIOTICS [Concomitant]
  17. EFFEXOR [Concomitant]
     Indication: DEPRESSION
     Dosage: 150 MG,DAILY
     Dates: start: 20090801, end: 20090824
  18. MUCINEX [Concomitant]
  19. COREG [Concomitant]
     Dosage: 12.5 TWO TIMES A DAY
  20. LISINOPRIL [Concomitant]

REACTIONS (7)
  - MYOCARDIAL INFARCTION [None]
  - PAIN [None]
  - EMOTIONAL DISTRESS [None]
  - INJURY [None]
  - ANXIETY [None]
  - GENERAL PHYSICAL HEALTH DETERIORATION [None]
  - PHYSICAL DISABILITY [None]
